FAERS Safety Report 18112538 (Version 1)
Quarter: 2020Q3

REPORT INFORMATION
  Report Type: Spontaneous
  Country: JP (occurrence: JP)
  Receive Date: 20200805
  Receipt Date: 20200805
  Transmission Date: 20201103
  Serious: Yes (Hospitalization, Other)
  Sender: FDA-Public Use
  Company Number: JP-B.I. PHARMACEUTICALS,INC./RIDGEFIELD-2020-NB-038906

PATIENT
  Age: 91 Year
  Sex: Female

DRUGS (1)
  1. SPIRIVA [Suspect]
     Active Substance: TIOTROPIUM BROMIDE MONOHYDRATE
     Indication: ASTHMA
     Dosage: 1.25UG,2.5UG
     Route: 055

REACTIONS (6)
  - Shock [Unknown]
  - Melaena [Unknown]
  - Enterocolitis [Unknown]
  - Drug eruption [Unknown]
  - Angioedema [Unknown]
  - Gastrointestinal oedema [Unknown]
